FAERS Safety Report 6422817-4 (Version None)
Quarter: 2009Q4

REPORT INFORMATION
  Report Type: 
  Country: None (occurrence: None)
  Receive Date: 20091102
  Receipt Date: 20091020
  Transmission Date: 20100525
  Serious: Yes (Hospitalization)
  Sender: FDA-Public Use
  Company Number: ES-ELI_LILLY_AND_COMPANY-ES200910005410

PATIENT
  Age: 77 Year
  Sex: Female

DRUGS (9)
  1. FORTEO [Suspect]
     Indication: OSTEOPOROSIS
     Dosage: 20 UG, UNK
     Route: 058
     Dates: start: 20090701
  2. SINTROM [Concomitant]
     Dosage: 4 MG, UNKNOWN
  3. ALMAX [Concomitant]
     Dosage: UNK, UNKNOWN
  4. PANTOPRAZOLE [Concomitant]
     Dosage: 40 MG, UNKNOWN
  5. DIGOXIN [Concomitant]
     Dosage: UNK, UNKNOWN
  6. ALDACTONE [Concomitant]
     Dosage: UNK, UNKNOWN
  7. SEGURIL [Concomitant]
     Dosage: UNK, UNKNOWN
  8. DALPARAN [Concomitant]
     Dosage: UNK, UNKNOWN
  9. SUMIAL [Concomitant]
     Dosage: UNK, UNKNOWN

REACTIONS (1)
  - CARDIAC FAILURE [None]
